FAERS Safety Report 8212684-0 (Version None)
Quarter: 2012Q1

REPORT INFORMATION
  Report Type: 
  Country: None (occurrence: None)
  Receive Date: 20120315
  Receipt Date: 20120307
  Transmission Date: 20120608
  Serious: Yes (Hospitalization)
  Sender: FDA-Public Use
  Company Number: US-AMGEN-USASP2012015202

PATIENT
  Age: 75 Year
  Sex: Female

DRUGS (1)
  1. ENBREL [Suspect]
     Indication: RHEUMATOID ARTHRITIS
     Dosage: 50 MG, QWK
     Dates: start: 20020420

REACTIONS (5)
  - CAROTID ARTERY OCCLUSION [None]
  - DYSPHAGIA [None]
  - SPEECH DISORDER [None]
  - CEREBROVASCULAR ACCIDENT [None]
  - HEMIPLEGIA [None]
